FAERS Safety Report 12203705 (Version 1)
Quarter: 2016Q1

REPORT INFORMATION
  Report Type: Other
  Country: TR (occurrence: TR)
  Receive Date: 20160323
  Receipt Date: 20160323
  Transmission Date: 20160526
  Serious: Yes (Hospitalization)
  Sender: FDA-Public Use
  Company Number: TR-LUPIN PHARMACEUTICALS INC.-2016-01098

PATIENT
  Age: 45 Year
  Sex: Male

DRUGS (3)
  1. PANTOPRAZOLE [Interacting]
     Active Substance: PANTOPRAZOLE SODIUM
     Indication: DYSPEPSIA
     Route: 065
  2. DICLOFENAC [Interacting]
     Active Substance: DICLOFENAC
     Dosage: TWO 50 MG DOSES
     Route: 065
  3. DICLOFENAC [Suspect]
     Active Substance: DICLOFENAC
     Indication: HEADACHE
     Route: 065

REACTIONS (2)
  - Drug interaction [Unknown]
  - Rhabdomyolysis [Recovered/Resolved]
